FAERS Safety Report 10459120 (Version 2)
Quarter: 2014Q3

REPORT INFORMATION
  Report Type: Report from Study
  Country: BR (occurrence: BR)
  Receive Date: 20140917
  Receipt Date: 20140917
  Transmission Date: 20150326
  Serious: Yes (Other)
  Sender: FDA-Public Use
  Company Number: BR-BAYER-2013-106034

PATIENT
  Age: 60 Year
  Sex: Male
  Weight: 58 kg

DRUGS (5)
  1. NEXAVAR [Suspect]
     Active Substance: SORAFENIB
     Indication: HEPATIC CANCER
     Dosage: UNK
     Dates: end: 201310
  2. NEXAVAR [Suspect]
     Active Substance: SORAFENIB
     Indication: HEPATIC CANCER
     Dosage: 400 MG, BID (2 DF IN THE MORNING AND 2 DF AT NIGHT)
     Dates: start: 201312, end: 201406
  3. NEXAVAR [Suspect]
     Active Substance: SORAFENIB
     Indication: HEPATIC CANCER
     Dosage: UNK
     Dates: start: 201310
  4. OMEPRAZOLE. [Concomitant]
     Active Substance: OMEPRAZOLE
     Indication: GASTRIC DISORDER
     Dosage: 1 DF, OM
     Route: 048
  5. DIPYRONE [Concomitant]
     Active Substance: DIPYRONE
     Indication: PAIN
     Dosage: 1 DF, QID
     Route: 048

REACTIONS (8)
  - Asthenia [Recovered/Resolved]
  - Immunodeficiency [Not Recovered/Not Resolved]
  - Decreased appetite [Recovered/Resolved]
  - General physical health deterioration [Recovered/Resolved]
  - Peripheral swelling [Recovered/Resolved]
  - Malaise [Recovered/Resolved]
  - Pulmonary mass [Unknown]
  - Abdominal distension [Recovered/Resolved]

NARRATIVE: CASE EVENT DATE: 201407
